FAERS Safety Report 9372024 (Version 1)
Quarter: 2013Q2

REPORT INFORMATION
  Report Type: Report from Study
  Country: US (occurrence: US)
  Receive Date: 20130627
  Receipt Date: 20130627
  Transmission Date: 20140414
  Serious: Yes (Death)
  Sender: FDA-Public Use
  Company Number: US-MYLANLABS-2012S1012871

PATIENT
  Age: 61 Year
  Sex: Female

DRUGS (6)
  1. CLOZAPINE TABLETS [Suspect]
     Route: 048
     Dates: end: 20120604
  2. CLOZAPINE TABLETS [Suspect]
     Route: 048
     Dates: end: 20120604
  3. LACTULOSE [Concomitant]
     Route: 048
  4. TRAZODONE [Concomitant]
  5. ACETAMINOPHEN [Concomitant]
     Indication: PYREXIA
     Route: 054
  6. MORPHINE SULFATE [Concomitant]
     Indication: PAIN
     Dosage: 0.25ML TO 1ML Q2H PRN
     Route: 060

REACTIONS (1)
  - Death [Fatal]
